FAERS Safety Report 8223970-2 (Version None)
Quarter: 2012Q1

REPORT INFORMATION
  Report Type: 
  Country: None (occurrence: None)
  Receive Date: 20120321
  Receipt Date: 20120309
  Transmission Date: 20120608
  Serious: Yes (Hospitalization, Other)
  Sender: FDA-Public Use
  Company Number: PHFR2011GB05667

PATIENT
  Sex: Female

DRUGS (7)
  1. CLOZARIL [Suspect]
     Indication: SCHIZOPHRENIA
     Dosage: 12.5 MG, DAILY
     Route: 048
     Dates: start: 20110924, end: 20110925
  2. LEVOTHYROXINE SODIUM [Concomitant]
     Dosage: 150 UG, DAILY
     Route: 048
  3. OLANZAPINE [Concomitant]
     Dosage: 10 MG, NOCTE
     Route: 048
  4. FLUOXETINE [Concomitant]
     Dosage: 20 MG, DAILY
     Route: 048
  5. DEPAKOTE [Concomitant]
     Dosage: 250 MG, TDS
     Route: 048
  6. SANDOCAL-D [Concomitant]
     Dosage: 1200 MG, DAILY
     Route: 048
  7. ALFACALCIDOL [Concomitant]
     Dosage: 0.5 MG, TDS
     Route: 048

REACTIONS (3)
  - RENAL IMPAIRMENT [None]
  - BODY TEMPERATURE INCREASED [None]
  - DEEP VEIN THROMBOSIS [None]
